FAERS Safety Report 16555815 (Version 4)
Quarter: 2019Q3

REPORT INFORMATION
  Report Type: Report from Study
  Country: BR (occurrence: BR)
  Receive Date: 20190710
  Receipt Date: 20190903
  Transmission Date: 20191004
  Serious: Yes (Hospitalization, Other)
  Sender: FDA-Public Use
  Company Number: PHHY2019BR091309

PATIENT
  Age: 35 Year
  Sex: Female

DRUGS (7)
  1. LETROZOLE. [Suspect]
     Active Substance: LETROZOLE
     Indication: BREAST CANCER
     Route: 065
  2. KISQALI [Suspect]
     Active Substance: RIBOCICLIB
     Dosage: 200 MG, X 3 TABLETS
     Route: 065
     Dates: start: 20190201
  3. KISQALI [Suspect]
     Active Substance: RIBOCICLIB
     Indication: BREAST CANCER
     Dosage: 200 MG, X 3 TABLETS
     Route: 065
     Dates: start: 20190201
  4. KISQALI [Suspect]
     Active Substance: RIBOCICLIB
     Dosage: 400 MG, UNK
     Route: 065
  5. ANASTROZOLE. [Suspect]
     Active Substance: ANASTROZOLE
     Indication: BREAST CANCER
     Route: 065
  6. ZOMETA [Suspect]
     Active Substance: ZOLEDRONIC ACID
     Indication: BREAST CANCER
     Dosage: UNK
     Route: 065
     Dates: start: 2017, end: 201801
  7. FASLODEX [Suspect]
     Active Substance: FULVESTRANT
     Indication: BREAST CANCER
     Dosage: UNK
     Route: 065
     Dates: start: 2017

REACTIONS (27)
  - Metastases to bone [Unknown]
  - Metastases to central nervous system [Unknown]
  - Swelling [Recovered/Resolved]
  - Pain [Unknown]
  - Cough [Unknown]
  - Musculoskeletal chest pain [Unknown]
  - Joint swelling [Unknown]
  - Pyrexia [Recovering/Resolving]
  - Bone pain [Unknown]
  - Arthralgia [Unknown]
  - Arthropathy [Unknown]
  - Alopecia [Not Recovered/Not Resolved]
  - Immune system disorder [Unknown]
  - Peripheral swelling [Unknown]
  - Metastases to spine [Unknown]
  - Joint injury [Unknown]
  - Pneumonia [Recovering/Resolving]
  - Hypersensitivity [Unknown]
  - Swelling [Unknown]
  - Arthritis [Unknown]
  - Influenza [Unknown]
  - Migraine [Recovered/Resolved]
  - Patellofemoral pain syndrome [Unknown]
  - Fatigue [Unknown]
  - Gait disturbance [Unknown]
  - Rhinorrhoea [Unknown]
  - Malaise [Unknown]

NARRATIVE: CASE EVENT DATE: 201702
